FAERS Safety Report 11934721 (Version 1)
Quarter: 2016Q1

REPORT INFORMATION
  Report Type: Spontaneous
  Country: US (occurrence: None)
  Receive Date: 20160120
  Receipt Date: 20160120
  Transmission Date: 20160526
  Serious: No
  Sender: FDA-Public Use
  Company Number: None

PATIENT
  Age: 39 Year
  Sex: Female
  Weight: 54.43 kg

DRUGS (2)
  1. GENERIC LUNESTA 2MG MYLAN, ? OTHER GENERIC [Suspect]
     Active Substance: ESZOPICLONE
     Indication: MIGRAINE
     Dosage: 1 PILL AT NIGHT ONCE DAILY TAKEN BY MOUTH
     Route: 048
  2. GENERIC LUNESTA 2MG MYLAN, ? OTHER GENERIC [Suspect]
     Active Substance: ESZOPICLONE
     Indication: INSOMNIA
     Dosage: 1 PILL AT NIGHT ONCE DAILY TAKEN BY MOUTH
     Route: 048

REACTIONS (4)
  - Product substitution issue [None]
  - Migraine [None]
  - Frustration tolerance decreased [None]
  - Drug ineffective [None]
